FAERS Safety Report 8247306-6 (Version None)
Quarter: 2012Q1

REPORT INFORMATION
  Report Type: 
  Country: None (occurrence: None)
  Receive Date: 20120327
  Receipt Date: 20120313
  Transmission Date: 20120608
  Serious: Yes (Life-Threatening, Hospitalization, Other)
  Sender: FDA-Public Use
  Company Number: LTI2011A00242

PATIENT
  Age: 68 Year
  Sex: Male

DRUGS (8)
  1. REPAGLINIDE [Concomitant]
  2. ATORVASTATIN CALCIUM [Concomitant]
  3. PIOGLITAZONE HYDROCHLORIDE/METFORMIN HYDROCHLORIDE [Suspect]
     Indication: TYPE 2 DIABETES MELLITUS
     Dosage: 2 DF (1 DF,2 IN 1 D) ORAL
     Route: 048
     Dates: start: 20080906, end: 20100519
  4. ADANCOR (NICORANDIL) [Concomitant]
  5. VALSARTAN [Concomitant]
  6. PLAVIX [Concomitant]
  7. METFORMIN HCL [Concomitant]
  8. SECTRAL [Concomitant]

REACTIONS (2)
  - BLADDER TRANSITIONAL CELL CARCINOMA STAGE III [None]
  - INTESTINAL FISTULA INFECTION [None]
